FAERS Safety Report 9703862 (Version 1)
Quarter: 2013Q4

REPORT INFORMATION
  Report Type: Spontaneous
  Country: US (occurrence: None)
  Receive Date: 20131121
  Receipt Date: 20131121
  Transmission Date: 20140711
  Serious: Yes (Other)
  Sender: FDA-Public Use
  Company Number: None

PATIENT
  Age: 44 Year
  Sex: Female
  Weight: 90.72 kg

DRUGS (1)
  1. GABAPENTIN 100 MG. CAPSULE [Suspect]
     Indication: INSOMNIA
     Dosage: 3 PILLS AT BEDTIME TAKEN BY MOUTH?APPROX. 2 MONTHS
     Route: 048

REACTIONS (10)
  - Muscle twitching [None]
  - Tremor [None]
  - Vision blurred [None]
  - Somnolence [None]
  - Diarrhoea [None]
  - Coordination abnormal [None]
  - Dysphagia [None]
  - Anxiety [None]
  - Product quality issue [None]
  - Withdrawal syndrome [None]
